FAERS Safety Report 4533271-1 (Version None)
Quarter: 2004Q4

REPORT INFORMATION
  Report Type: 
  Country: None (occurrence: None)
  Receive Date: 20041107
  Receipt Date: 20040915
  Transmission Date: 20050328
  Serious: Yes (Other)
  Sender: FDA-Public Use
  Company Number: 800126

PATIENT
  Sex: Male

DRUGS (16)
  1. DIANEAL [Suspect]
     Indication: PERITONEAL DIALYSIS
     Dosage: 12. 5L; INTRAPERITONEAL
     Route: 033
     Dates: start: 20040301
  2. CONDROITIN [Concomitant]
  3. SODIUM BICARBONATE [Concomitant]
  4. FEBREX [Concomitant]
  5. LABETALOL [Concomitant]
  6. LIPITOR [Concomitant]
  7. ASPIRIN [Concomitant]
  8. METAMUCIL-2 [Concomitant]
  9. EPOGEN [Concomitant]
  10. HECTORAL [Concomitant]
  11. VIOXX [Concomitant]
  12. FALCEP [Concomitant]
  13. ZESTRIL [Concomitant]
  14. REMAGEL [Concomitant]
  15. NEPHROCAPS [Concomitant]
  16. BACTRIM [Concomitant]

REACTIONS (2)
  - INFECTION [None]
  - PERITONITIS BACTERIAL [None]
